FAERS Safety Report 10049648 (Version 1)
Quarter: 2014Q1

REPORT INFORMATION
  Report Type: Spontaneous
  Country: ES (occurrence: None)
  Receive Date: 20140328
  Receipt Date: 20140328
  Transmission Date: 20141002
  Serious: Yes (Other)
  Sender: FDA-Public Use
  Company Number: 2014-ES-003655

PATIENT
  Sex: Female

DRUGS (6)
  1. XYREM [Suspect]
     Indication: NARCOLEPSY
     Route: 048
     Dates: start: 20131217, end: 20140204
  2. XYREM [Suspect]
     Indication: CATAPLEXY
     Route: 048
     Dates: start: 20131217, end: 20140204
  3. PLENUR (LITHIUM CARBONATE) [Concomitant]
  4. VENLAFAXINE (VENLAFAXINE HYDROCHLORIDE) (UNKNOWN) (VENLAFAXINE HYDROCHLORIDE) [Concomitant]
  5. LAMICTAL (LAMOTRIGINE) [Concomitant]
  6. EUTIROX (LEVOTHYROXINE SODIUM0 [Concomitant]

REACTIONS (4)
  - Apathy [None]
  - Depression [None]
  - Anxiety [None]
  - Drug dose omission [None]
